FAERS Safety Report 5337694-2 (Version None)
Quarter: 2007Q2

REPORT INFORMATION
  Report Type: 
  Country: None (occurrence: None)
  Receive Date: 20070315
  Receipt Date: 20060807
  Transmission Date: 20071010
  Serious: Yes (Other)
  Sender: FDA-Public Use
  Company Number: PHEH2006US05280

PATIENT
  Sex: Female

DRUGS (1)
  1. TRILEPTAL [Suspect]
     Indication: CONVULSION
     Dosage: 600 MG, TID, ORAL
     Route: 048
     Dates: start: 19990101

REACTIONS (5)
  - ERYTHEMA [None]
  - SKIN DISCOLOURATION [None]
  - SKIN NECROSIS [None]
  - SKIN REACTION [None]
  - SYSTEMIC LUPUS ERYTHEMATOSUS [None]
